FAERS Safety Report 7532052-4 (Version None)
Quarter: 2011Q2

REPORT INFORMATION
  Report Type: 
  Country: None (occurrence: None)
  Receive Date: 20110608
  Receipt Date: 20110606
  Transmission Date: 20111010
  Serious: Yes (Life-Threatening, Hospitalization, Other)
  Sender: FDA-Public Use
  Company Number: ZA-ABBOTT-09P-143-0589798-00

PATIENT
  Sex: Male

DRUGS (3)
  1. HUMIRA [Suspect]
     Indication: CROHN'S DISEASE
     Route: 058
     Dates: start: 20080101
  2. HUMIRA [Suspect]
  3. HUMIRA [Suspect]
     Indication: ANAL FISTULA

REACTIONS (4)
  - CARDIOVASCULAR DISORDER [None]
  - CHEST PAIN [None]
  - AORTIC OCCLUSION [None]
  - MYOCARDIAL INFARCTION [None]
